APPROVED DRUG PRODUCT: NILANDRON
Active Ingredient: NILUTAMIDE
Strength: 150MG
Dosage Form/Route: TABLET;ORAL
Application: N020169 | Product #002 | TE Code: AB
Applicant: ADVANZ PHARMA (US) CORP
Approved: Apr 30, 1999 | RLD: Yes | RS: Yes | Type: RX